FAERS Safety Report 24464878 (Version 1)
Quarter: 2024Q4

REPORT INFORMATION
  Report Type: Report from Study
  Country: US (occurrence: US)
  Receive Date: 20241018
  Receipt Date: 20241018
  Transmission Date: 20250115
  Serious: No
  Sender: ROCHE
  Company Number: US-ROCHE-3514603

PATIENT
  Age: 58 Year
  Sex: Male
  Weight: 120.2 kg

DRUGS (9)
  1. XOLAIR [Suspect]
     Active Substance: OMALIZUMAB
     Indication: Idiopathic urticaria
     Dosage: 2 INJECTIONS ONE IN EACH ARM
     Route: 058
     Dates: start: 20240207
  2. XOLAIR [Suspect]
     Active Substance: OMALIZUMAB
  3. IBUPROFEN [Suspect]
     Active Substance: IBUPROFEN
     Indication: Pain
     Route: 065
  4. IBUPROFEN [Suspect]
     Active Substance: IBUPROFEN
     Indication: Pain
  5. ZYRTEC [Concomitant]
     Active Substance: CETIRIZINE HYDROCHLORIDE
  6. PEPCID [Concomitant]
     Active Substance: FAMOTIDINE
  7. TIRZEPATIDE [Concomitant]
     Active Substance: TIRZEPATIDE
  8. MONTELUKAST [Concomitant]
     Active Substance: MONTELUKAST
  9. TYLENOL [Concomitant]
     Active Substance: ACETAMINOPHEN

REACTIONS (2)
  - Urticaria [Not Recovered/Not Resolved]
  - Off label use [Unknown]
